FAERS Safety Report 5237486-9 (Version None)
Quarter: 2007Q1

REPORT INFORMATION
  Report Type: 
  Country: None (occurrence: None)
  Receive Date: 20070213
  Receipt Date: 20070110
  Transmission Date: 20070707
  Serious: Yes (Hospitalization, Other)
  Sender: FDA-Public Use
  Company Number: US-PFIZER INC-2006067810

PATIENT
  Sex: Male
  Weight: 72.6 kg

DRUGS (1)
  1. BEXTRA [Suspect]
     Indication: MONARTHRITIS
     Dates: start: 20041112, end: 20041231

REACTIONS (11)
  - ATRIAL FIBRILLATION [None]
  - BLOOD CHOLESTEROL INCREASED [None]
  - CEREBROVASCULAR ACCIDENT [None]
  - DEPRESSION [None]
  - FRUSTRATION [None]
  - HAEMORRHAGE [None]
  - HYPERTENSION [None]
  - IMPAIRED DRIVING ABILITY [None]
  - PARTNER STRESS [None]
  - SELF ESTEEM DECREASED [None]
  - THROMBOSIS [None]
